FAERS Safety Report 5129408-6 (Version None)
Quarter: 2006Q4

REPORT INFORMATION
  Report Type: 
  Country: None (occurrence: None)
  Receive Date: 20061018
  Receipt Date: 20061009
  Transmission Date: 20070319
  Serious: Yes (Other)
  Sender: FDA-Public Use
  Company Number: PHBS2006NL15704

PATIENT
  Age: 25 Year
  Sex: Male

DRUGS (1)
  1. ELIDEL [Suspect]
     Indication: ECZEMA
     Dosage: UNK, BID
     Route: 061
     Dates: start: 20060501, end: 20060801

REACTIONS (1)
  - XERODERMA [None]
